FAERS Safety Report 19014023 (Version 2)
Quarter: 2021Q1

REPORT INFORMATION
  Report Type: Spontaneous
  Country: US (occurrence: US)
  Receive Date: 20210316
  Receipt Date: 20210318
  Transmission Date: 20210420
  Serious: Yes (Death, Disabling, Other)
  Sender: FDA-Public Use
  Company Number: US-ELI_LILLY_AND_COMPANY-US202012012909

PATIENT
  Age: 66 Year
  Sex: Female

DRUGS (1)
  1. GEMZAR [Suspect]
     Active Substance: GEMCITABINE HYDROCHLORIDE
     Indication: PRODUCT USED FOR UNKNOWN INDICATION
     Dosage: 1800 MG, UNKNOWN
     Route: 065
     Dates: start: 20200224, end: 20200714

REACTIONS (7)
  - Disruption of the photoreceptor inner segment-outer segment [Unknown]
  - Malignant neoplasm progression [Fatal]
  - Blindness [Unknown]
  - Detachment of retinal pigment epithelium [Unknown]
  - Autoimmune retinopathy [Not Recovered/Not Resolved]
  - Ischaemic stroke [Fatal]
  - Subretinal fluid [Unknown]

NARRATIVE: CASE EVENT DATE: 20200805
